FAERS Safety Report 25299970 (Version 1)
Quarter: 2025Q2

REPORT INFORMATION
  Report Type: Spontaneous
  Country: CA (occurrence: CA)
  Receive Date: 20250512
  Receipt Date: 20250512
  Transmission Date: 20250716
  Serious: Yes (Other)
  Sender: MYLAN
  Company Number: CA-MYLANLABS-2025M1038711

PATIENT
  Age: 76 Year
  Sex: Female

DRUGS (56)
  1. GABAPENTIN [Suspect]
     Active Substance: GABAPENTIN
     Indication: Pain
  2. GABAPENTIN [Suspect]
     Active Substance: GABAPENTIN
     Route: 065
  3. GABAPENTIN [Suspect]
     Active Substance: GABAPENTIN
     Route: 065
  4. GABAPENTIN [Suspect]
     Active Substance: GABAPENTIN
  5. METHOTREXATE [Suspect]
     Active Substance: METHOTREXATE
     Indication: Pain
     Dosage: 25 MILLIGRAM, QW (1 EVERY 1 WEEKS)
  6. METHOTREXATE [Suspect]
     Active Substance: METHOTREXATE
     Dosage: 25 MILLIGRAM, QW (1 EVERY 1 WEEKS)
  7. METHOTREXATE [Suspect]
     Active Substance: METHOTREXATE
     Dosage: 25 MILLIGRAM, QW (1 EVERY 1 WEEKS)
     Route: 065
  8. METHOTREXATE [Suspect]
     Active Substance: METHOTREXATE
     Dosage: 25 MILLIGRAM, QW (1 EVERY 1 WEEKS)
     Route: 065
  9. METHOTREXATE [Suspect]
     Active Substance: METHOTREXATE
     Dosage: UNK, QW (1 EVERY 1 WEEK)
  10. METHOTREXATE [Suspect]
     Active Substance: METHOTREXATE
     Dosage: UNK, QW (1 EVERY 1 WEEK)
  11. METHOTREXATE [Suspect]
     Active Substance: METHOTREXATE
     Dosage: UNK, QW (1 EVERY 1 WEEK)
     Route: 065
  12. METHOTREXATE [Suspect]
     Active Substance: METHOTREXATE
     Dosage: UNK, QW (1 EVERY 1 WEEK)
     Route: 065
  13. ACTEMRA [Suspect]
     Active Substance: TOCILIZUMAB
     Indication: Rheumatoid arthritis
     Dosage: 800 MILLIGRAM, MONTHLY (1 EVERY 4 WEEKS)
  14. ACTEMRA [Suspect]
     Active Substance: TOCILIZUMAB
     Dosage: 800 MILLIGRAM, MONTHLY (1 EVERY 4 WEEKS)
     Route: 042
  15. ACTEMRA [Suspect]
     Active Substance: TOCILIZUMAB
     Dosage: 800 MILLIGRAM, MONTHLY (1 EVERY 4 WEEKS)
     Route: 042
  16. ACTEMRA [Suspect]
     Active Substance: TOCILIZUMAB
     Dosage: 800 MILLIGRAM, MONTHLY (1 EVERY 4 WEEKS)
  17. AMLODIPINE [Concomitant]
     Active Substance: AMLODIPINE BESYLATE
  18. AMLODIPINE [Concomitant]
     Active Substance: AMLODIPINE BESYLATE
     Route: 065
  19. AMLODIPINE [Concomitant]
     Active Substance: AMLODIPINE BESYLATE
     Route: 065
  20. AMLODIPINE [Concomitant]
     Active Substance: AMLODIPINE BESYLATE
  21. APIXABAN [Concomitant]
     Active Substance: APIXABAN
  22. APIXABAN [Concomitant]
     Active Substance: APIXABAN
     Route: 065
  23. APIXABAN [Concomitant]
     Active Substance: APIXABAN
     Route: 065
  24. APIXABAN [Concomitant]
     Active Substance: APIXABAN
  25. BISOPROLOL [Concomitant]
     Active Substance: BISOPROLOL
  26. BISOPROLOL [Concomitant]
     Active Substance: BISOPROLOL
     Route: 065
  27. BISOPROLOL [Concomitant]
     Active Substance: BISOPROLOL
     Route: 065
  28. BISOPROLOL [Concomitant]
     Active Substance: BISOPROLOL
  29. BREO ELLIPTA [Concomitant]
     Active Substance: FLUTICASONE FUROATE\VILANTEROL TRIFENATATE
  30. BREO ELLIPTA [Concomitant]
     Active Substance: FLUTICASONE FUROATE\VILANTEROL TRIFENATATE
     Route: 065
  31. BREO ELLIPTA [Concomitant]
     Active Substance: FLUTICASONE FUROATE\VILANTEROL TRIFENATATE
     Route: 065
  32. BREO ELLIPTA [Concomitant]
     Active Substance: FLUTICASONE FUROATE\VILANTEROL TRIFENATATE
  33. EZETIMIBE [Concomitant]
     Active Substance: EZETIMIBE
  34. EZETIMIBE [Concomitant]
     Active Substance: EZETIMIBE
     Route: 065
  35. EZETIMIBE [Concomitant]
     Active Substance: EZETIMIBE
     Route: 065
  36. EZETIMIBE [Concomitant]
     Active Substance: EZETIMIBE
  37. GLUCOSAMINE [Concomitant]
     Active Substance: GLUCOSAMINE
  38. GLUCOSAMINE [Concomitant]
     Active Substance: GLUCOSAMINE
     Route: 065
  39. GLUCOSAMINE [Concomitant]
     Active Substance: GLUCOSAMINE
     Route: 065
  40. GLUCOSAMINE [Concomitant]
     Active Substance: GLUCOSAMINE
  41. LIPITOR [Concomitant]
     Active Substance: ATORVASTATIN CALCIUM
     Dosage: 80 MILLIGRAM, QD (1 EVERY 1 DAYS)
  42. LIPITOR [Concomitant]
     Active Substance: ATORVASTATIN CALCIUM
     Dosage: 80 MILLIGRAM, QD (1 EVERY 1 DAYS)
     Route: 065
  43. LIPITOR [Concomitant]
     Active Substance: ATORVASTATIN CALCIUM
     Dosage: 80 MILLIGRAM, QD (1 EVERY 1 DAYS)
     Route: 065
  44. LIPITOR [Concomitant]
     Active Substance: ATORVASTATIN CALCIUM
     Dosage: 80 MILLIGRAM, QD (1 EVERY 1 DAYS)
  45. OLMESARTAN [Concomitant]
     Active Substance: OLMESARTAN
  46. OLMESARTAN [Concomitant]
     Active Substance: OLMESARTAN
     Route: 065
  47. OLMESARTAN [Concomitant]
     Active Substance: OLMESARTAN
     Route: 065
  48. OLMESARTAN [Concomitant]
     Active Substance: OLMESARTAN
  49. PREDNISONE [Concomitant]
     Active Substance: PREDNISONE
  50. PREDNISONE [Concomitant]
     Active Substance: PREDNISONE
     Route: 065
  51. PREDNISONE [Concomitant]
     Active Substance: PREDNISONE
     Route: 065
  52. PREDNISONE [Concomitant]
     Active Substance: PREDNISONE
  53. ALBUTEROL [Concomitant]
     Active Substance: ALBUTEROL
  54. ALBUTEROL [Concomitant]
     Active Substance: ALBUTEROL
     Route: 065
  55. ALBUTEROL [Concomitant]
     Active Substance: ALBUTEROL
     Route: 065
  56. ALBUTEROL [Concomitant]
     Active Substance: ALBUTEROL

REACTIONS (8)
  - Lower respiratory tract congestion [Unknown]
  - Sinus congestion [Unknown]
  - Arthralgia [Unknown]
  - Cough [Unknown]
  - Pneumonia [Unknown]
  - Herpes zoster [Unknown]
  - Drug ineffective [Unknown]
  - Off label use [Unknown]
